FAERS Safety Report 8386682-0 (Version None)
Quarter: 2012Q2

REPORT INFORMATION
  Report Type: 
  Country: None (occurrence: None)
  Receive Date: 20120523
  Receipt Date: 20120523
  Transmission Date: 20120825
  Serious: Yes (Disabling, Other)
  Sender: FDA-Public Use
  Company Number: None

PATIENT
  Sex: Female
  Weight: 79.3795 kg

DRUGS (1)
  1. TRANSDERM SCOP [Suspect]
     Indication: IMPAIRED GASTRIC EMPTYING
     Dosage: ONE PATCH EVERY 72 HOURS TRANSDERMAL
     Route: 062
     Dates: start: 20120425, end: 20120425

REACTIONS (4)
  - MYDRIASIS [None]
  - ALTERED VISUAL DEPTH PERCEPTION [None]
  - IMPAIRED DRIVING ABILITY [None]
  - VISION BLURRED [None]
